FAERS Safety Report 12458866 (Version 1)
Quarter: 2016Q2

REPORT INFORMATION
  Report Type: Spontaneous
  Country: DE (occurrence: DE)
  Receive Date: 20160613
  Receipt Date: 20160613
  Transmission Date: 20160815
  Serious: Yes (Congenital Anomaly, Other)
  Sender: FDA-Public Use
  Company Number: DE-SUN PHARMACEUTICAL INDUSTRIES LTD-2016R1-118188

PATIENT
  Sex: Female
  Weight: 4.17 kg

DRUGS (4)
  1. ABILIFY [Suspect]
     Active Substance: ARIPIPRAZOLE
     Indication: PRODUCT USED FOR UNKNOWN INDICATION
     Dosage: 5 MG, QD
     Route: 064
     Dates: start: 20150427, end: 20160208
  2. DOXYCYCLINE. [Suspect]
     Active Substance: DOXYCYCLINE
     Indication: MYCOPLASMA INFECTION
     Dosage: 200 MG, QD
     Route: 064
     Dates: start: 20160527, end: 20160605
  3. FLUOMIZIN [Concomitant]
     Active Substance: DEQUALINIUM CHLORIDE
     Indication: MYCOPLASMA INFECTION
     Dosage: UNK, QD
     Route: 064
     Dates: start: 20150604, end: 20150609
  4. GRIPPE-IMPFSTOFF STADA N [Concomitant]
     Indication: IMMUNISATION
     Dosage: UNK
     Route: 064
     Dates: start: 20150818, end: 20150818

REACTIONS (3)
  - Ventricular septal defect [Not Recovered/Not Resolved]
  - Large for dates baby [Recovered/Resolved]
  - Foetal exposure during pregnancy [Recovered/Resolved]
